FAERS Safety Report 24143234 (Version 1)
Quarter: 2024Q3

REPORT INFORMATION
  Report Type: Spontaneous
  Country: US (occurrence: US)
  Receive Date: 20240726
  Receipt Date: 20240726
  Transmission Date: 20241017
  Serious: Yes (Other)
  Sender: MAYNE
  Company Number: US-MAYNE PHARMA-2024MYN000289

PATIENT

DRUGS (2)
  1. DORYX [Suspect]
     Active Substance: DOXYCYCLINE HYCLATE
     Indication: Q fever
     Dosage: 100 MG, BID
     Route: 065
  2. HYDROXYCHLOROQUINE [Concomitant]
     Active Substance: HYDROXYCHLOROQUINE
     Indication: Q fever
     Dosage: 200 MG, TID
     Route: 065

REACTIONS (3)
  - Deafness [Unknown]
  - Tinnitus [Unknown]
  - Off label use [Unknown]
